FAERS Safety Report 25255721 (Version 4)
Quarter: 2025Q2

REPORT INFORMATION
  Report Type: Spontaneous
  Country: US (occurrence: US)
  Receive Date: 20250430
  Receipt Date: 20250604
  Transmission Date: 20250716
  Serious: No
  Sender: PFIZER
  Company Number: US-PFIZER INC-202500083499

PATIENT
  Age: 13 Year
  Sex: Male
  Weight: 25.6 kg

DRUGS (3)
  1. GENOTROPIN [Suspect]
     Active Substance: SOMATROPIN
     Indication: Hypopituitarism
     Dosage: 0.9 MG, DAILY (INJECT 0.9 MG INTO THE SKIN)
     Route: 058
     Dates: start: 20240627
  2. GENOTROPIN [Suspect]
     Active Substance: SOMATROPIN
     Indication: Growth hormone deficiency
     Dosage: 1 MG, DAILY (INJECTIONS ARE GIVEN IN HIS LEGS)
     Route: 058
  3. GENOTROPIN [Suspect]
     Active Substance: SOMATROPIN
     Indication: Short stature
     Dosage: 1.2 MG, DAILY
     Route: 058

REACTIONS (2)
  - Device breakage [Unknown]
  - Prescribed overdose [Unknown]
